FAERS Safety Report 5133887-8 (Version None)
Quarter: 2006Q4

REPORT INFORMATION
  Report Type: 
  Country: None (occurrence: None)
  Receive Date: 20061019
  Receipt Date: 20061010
  Transmission Date: 20070319
  Serious: Yes (Life-Threatening)
  Sender: FDA-Public Use
  Company Number: 06H-082-0310722-00

PATIENT
  Age: 55 Year
  Sex: Female

DRUGS (6)
  1. PROPOFOL [Suspect]
     Indication: INDUCTION OF ANAESTHESIA
  2. FENTANYL [Suspect]
     Indication: ANAESTHESIA
  3. FENTANYL [Suspect]
     Indication: INDUCTION OF ANAESTHESIA
  4. ROCURONIUM (ROCURONIUM) [Suspect]
     Indication: INDUCTION OF ANAESTHESIA
  5. NITROUS OXIDE IN OXYGEN (NITROUS OXIDE) [Suspect]
     Indication: MAINTENANCE OF ANAESTHESIA
     Dosage: INHALATION
     Route: 055
  6. ISOFLURANE [Suspect]
     Indication: MAINTENANCE OF ANAESTHESIA
     Dosage: INHALATION
     Route: 055

REACTIONS (5)
  - ACUTE MYOCARDIAL INFARCTION [None]
  - ANAESTHETIC COMPLICATION [None]
  - APNOEA [None]
  - CARDIAC FAILURE CONGESTIVE [None]
  - CARDIOMYOPATHY [None]
